FAERS Safety Report 9164444 (Version 2)
Quarter: 2013Q2

REPORT INFORMATION
  Report Type: Spontaneous
  Country: US (occurrence: None)
  Receive Date: 20130205
  Receipt Date: 20130521
  Transmission Date: 20140414
  Serious: Yes (Hospitalization, Other)
  Sender: FDA-Public Use
  Company Number: JPI-P-029385

PATIENT
  Age: 47 Year
  Sex: Female

DRUGS (10)
  1. XYREM [Suspect]
     Indication: SOMNOLENCE
     Dosage: 6 GM (3 GM, 2 IN 1 D), ORAL
     Route: 048
  2. AMITRIPTYLINE [Concomitant]
  3. ZONISAMIDE [Concomitant]
  4. LEVETIRACETAM [Suspect]
  5. VERAPAMIL [Suspect]
  6. WARFARIN SODIUM [Concomitant]
  7. FIBER [Concomitant]
  8. ASPIRIN [Concomitant]
  9. IRON [Concomitant]
  10. VITAMIN D W/ CALCIUM [Concomitant]

REACTIONS (3)
  - Hysterectomy [None]
  - Joint injury [None]
  - Limb injury [None]
